FAERS Safety Report 15188379 (Version 1)
Quarter: 2018Q3

REPORT INFORMATION
  Report Type: Spontaneous
  Country: BR (occurrence: BR)
  Receive Date: 20180724
  Receipt Date: 20180724
  Transmission Date: 20181010
  Serious: Yes (Other)
  Sender: FDA-Public Use
  Company Number: BR-TORRENT-00004496

PATIENT
  Age: 92 Year
  Sex: Female
  Weight: 63 kg

DRUGS (6)
  1. NEBIVOLOL HYDROCHLORIDE [Suspect]
     Active Substance: NEBIVOLOL HYDROCHLORIDE
     Indication: ARRHYTHMIA
     Dosage: ONE TABLET IN THE MORNING
     Route: 048
     Dates: start: 20180628, end: 20180707
  2. ENALAPRIL MALEATE. [Concomitant]
     Active Substance: ENALAPRIL MALEATE
     Indication: HYPERTENSION
     Dosage: 1 TAB (MORNING) 1 TAB (NIGHT)
     Route: 048
  3. ACETYLSALICYLIC ACID [Concomitant]
     Active Substance: ASPIRIN
     Indication: ANTICOAGULANT THERAPY
     Dosage: UNSPECIFIED
     Route: 048
     Dates: start: 2016
  4. DIPYRONE [Concomitant]
     Active Substance: DIPYRONE
     Indication: PAIN
     Dosage: UNKNOWN
     Route: 048
     Dates: start: 2016
  5. SIMVASTATIN. [Concomitant]
     Active Substance: SIMVASTATIN
     Indication: HYPERTENSION
     Dosage: UNSPECIFIED
  6. OMEPRAZOLE. [Concomitant]
     Active Substance: OMEPRAZOLE
     Indication: PRODUCT USED FOR UNKNOWN INDICATION
     Dosage: UNSPECIFIED
     Route: 048
     Dates: start: 2018

REACTIONS (4)
  - Hallucination, visual [Recovered/Resolved]
  - Delirium [Recovered/Resolved]
  - Agitation [Recovered/Resolved]
  - Dizziness [Unknown]

NARRATIVE: CASE EVENT DATE: 20180630
